FAERS Safety Report 5714954-4 (Version None)
Quarter: 2008Q2

REPORT INFORMATION
  Report Type: 
  Country: None (occurrence: None)
  Receive Date: 20080423
  Receipt Date: 20080415
  Transmission Date: 20081010
  Serious: Yes (Other)
  Sender: FDA-Public Use
  Company Number: US-ASTRAZENECA-2007UW09443

PATIENT
  Age: 56 Year
  Sex: Male
  Weight: 106.8 kg

DRUGS (8)
  1. SEROQUEL [Suspect]
     Indication: SCHIZOPHRENIA
     Dosage: 200 MG, 600 MG
     Route: 048
     Dates: start: 20010101
  2. SEROQUEL [Suspect]
     Indication: DEPRESSION
     Dosage: 200 MG, 600 MG
     Route: 048
     Dates: start: 20010101
  3. SEROQUEL [Suspect]
     Indication: PARANOIA
     Dosage: 200 MG, 600 MG
     Route: 048
     Dates: start: 20010101
  4. HALDOL [Concomitant]
     Dosage: 100 MG-125 MG
     Dates: start: 19990101, end: 20000101
  5. PROZAC [Concomitant]
     Dosage: 20 MG-40 MG
     Dates: start: 19990101, end: 20010101
  6. COGENTIN [Concomitant]
     Dates: start: 20000101, end: 20010101
  7. TRAZODONE HCL [Concomitant]
     Dosage: 100 MG-150 MG
     Dates: start: 19950101, end: 20010101
  8. ZYPREXA [Concomitant]
     Dates: start: 19990101, end: 20010101

REACTIONS (15)
  - ANXIETY [None]
  - ARTERIAL DISORDER [None]
  - ARTERIAL OCCLUSIVE DISEASE [None]
  - BLOOD CHOLESTEROL INCREASED [None]
  - CHEST PAIN [None]
  - CHRONIC OBSTRUCTIVE PULMONARY DISEASE [None]
  - COLONIC POLYP [None]
  - COUGH [None]
  - DIABETES MELLITUS [None]
  - HAEMORRHOIDS [None]
  - HYPERTENSION [None]
  - INJURY [None]
  - LOSS OF CONSCIOUSNESS [None]
  - PAIN [None]
  - SYNCOPE [None]
